FAERS Safety Report 16949622 (Version 2)
Quarter: 2025Q3

REPORT INFORMATION
  Report Type: Spontaneous
  Country: US (occurrence: US)
  Receive Date: 20191023
  Receipt Date: 20250923
  Transmission Date: 20251020
  Serious: Yes (Disabling, Other)
  Sender: SANOFI AVENTIS
  Company Number: US-SA-2019SA280821

PATIENT
  Age: 62 Year
  Sex: Female

DRUGS (4)
  1. TAXOTERE [Suspect]
     Active Substance: DOCETAXEL
     Indication: Invasive breast carcinoma
  2. HYDROXYCHLOROQUINE [Suspect]
     Active Substance: HYDROXYCHLOROQUINE
     Indication: Rheumatoid arthritis
     Dosage: 200 MG, QD
  3. CYCLOPHOSPHAMIDE [Concomitant]
     Active Substance: CYCLOPHOSPHAMIDE
     Indication: Invasive breast carcinoma
  4. CORTICOSTEROID NOS [Concomitant]
     Active Substance: CORTICOSTEROID NOS
     Indication: Invasive ductal breast carcinoma

REACTIONS (7)
  - Macular degeneration [Recovering/Resolving]
  - Blindness [Recovering/Resolving]
  - Vision blurred [Recovering/Resolving]
  - Cystoid macular oedema [Recovering/Resolving]
  - Retinal thickening [Recovering/Resolving]
  - Maculopathy [Recovering/Resolving]
  - Cataract nuclear [Unknown]
